FAERS Safety Report 15426147 (Version 2)
Quarter: 2018Q3

REPORT INFORMATION
  Report Type: Spontaneous
  Country: US (occurrence: US)
  Receive Date: 20180925
  Receipt Date: 20180927
  Transmission Date: 20181010
  Serious: Yes (Hospitalization, Other)
  Sender: FDA-Public Use
  Company Number: US-PFIZER INC-2018386811

PATIENT
  Age: 70 Year
  Sex: Female

DRUGS (1)
  1. METHOTREXATE SODIUM. [Suspect]
     Active Substance: METHOTREXATE SODIUM
     Dosage: UNK

REACTIONS (9)
  - Limb injury [Unknown]
  - Pain [Unknown]
  - Fall [Unknown]
  - Hand deformity [Unknown]
  - Weight decreased [Unknown]
  - Drug ineffective [Unknown]
  - Femur fracture [Unknown]
  - Pain in extremity [Unknown]
  - Amnesia [Unknown]
